FAERS Safety Report 16482611 (Version 1)
Quarter: 2019Q2

REPORT INFORMATION
  Report Type: Spontaneous
  Country: NL (occurrence: NL)
  Receive Date: 20190627
  Receipt Date: 20190627
  Transmission Date: 20190711
  Serious: Yes (Hospitalization)
  Sender: FDA-Public Use
  Company Number: PHHY2019NL143425

PATIENT
  Sex: Female

DRUGS (6)
  1. LAMOTRIGINE. [Suspect]
     Active Substance: LAMOTRIGINE
     Indication: FOETAL EXPOSURE DURING PREGNANCY
     Dosage: 150 MG, QD (50 MG, 3X/DAY (TID)) MATERNAL DOSE
     Route: 064
     Dates: start: 2011, end: 20120330
  2. KEPPRA [Suspect]
     Active Substance: LEVETIRACETAM
     Indication: FOETAL EXPOSURE DURING PREGNANCY
     Dosage: 3 OT, QD (500-250-250) (MATERNAL DOSE)
     Route: 064
     Dates: start: 2011, end: 20120330
  3. FYTOMENADION [Concomitant]
     Indication: FOETAL EXPOSURE DURING PREGNANCY
     Dosage: 10 MG/ML: PARENT ROUTE: INTRAVENOUS/ORAL, MATERNAL DOSE
     Route: 064
  4. FOLIUMZUUR [Concomitant]
     Active Substance: FOLIC ACID
     Indication: FOETAL EXPOSURE DURING PREGNANCY
     Dosage: 5 MG, QD (5 MG, ONCE DAILY (QD)) MATERNAL DOSE
     Route: 064
  5. FERROFUMARAAT [Concomitant]
     Indication: FOETAL EXPOSURE DURING PREGNANCY
     Dosage: 200 MG, MATERNAL DOSE
     Route: 064
  6. VITAMIN K [Concomitant]
     Active Substance: PHYTONADIONE
     Indication: FOETAL EXPOSURE DURING PREGNANCY
     Route: 064

REACTIONS (2)
  - Hypoventilation [Recovered/Resolved]
  - Foetal exposure during pregnancy [Unknown]

NARRATIVE: CASE EVENT DATE: 2011
